FAERS Safety Report 10268977 (Version 1)
Quarter: 2014Q2

REPORT INFORMATION
  Report Type: Spontaneous
  Country: US (occurrence: US)
  Receive Date: 20140630
  Receipt Date: 20140630
  Transmission Date: 20141212
  Serious: Yes (Hospitalization, Other)
  Sender: FDA-Public Use
  Company Number: US-TEVA-490698USA

PATIENT
  Age: 15 Year
  Sex: Female

DRUGS (7)
  1. LAMOTRIGINE [Suspect]
     Dosage: 25 MILLIGRAM DAILY;
     Route: 065
  2. GUANFACINE [Suspect]
     Dosage: 2MG DAILY
     Route: 065
  3. OXCARBAZEPINE [Concomitant]
     Dosage: 150-1200MG DAILY
     Route: 065
  4. LITHIUM [Concomitant]
     Dosage: 1050-1350 MG DAILY
     Route: 065
  5. TRAZODONE [Concomitant]
     Dosage: 100-200MG DAILY
     Route: 065
  6. LORAZEPAM [Concomitant]
     Dosage: 12-16 MG DAILY
     Route: 065
  7. CHLORPROMAZINE [Concomitant]
     Dosage: 100 MG DAILY
     Route: 065

REACTIONS (1)
  - Aggression [Unknown]
